FAERS Safety Report 21662415 (Version 1)
Quarter: 2022Q4

REPORT INFORMATION
  Report Type: Spontaneous
  Country: US (occurrence: None)
  Receive Date: 20221129
  Receipt Date: 20221129
  Transmission Date: 20230113
  Serious: No
  Sender: FDA-Public Use
  Company Number: None

PATIENT
  Age: 61 Year
  Sex: Female
  Weight: 54 kg

DRUGS (4)
  1. VTAMA [Suspect]
     Active Substance: TAPINAROF
     Indication: Psoriasis
     Dosage: FREQUENCY : AS NEEDED;?
     Route: 061
     Dates: start: 20221120, end: 20221121
  2. IBANDRONATE SODIUM [Concomitant]
     Active Substance: IBANDRONATE SODIUM
  3. CALCIUM [Concomitant]
     Active Substance: CALCIUM
  4. VITAMIN D3 [Concomitant]
     Active Substance: CHOLECALCIFEROL

REACTIONS (5)
  - Ear swelling [None]
  - Application site swelling [None]
  - Application site pruritus [None]
  - Application site pain [None]
  - Application site vesicles [None]

NARRATIVE: CASE EVENT DATE: 20221120
